FAERS Safety Report 9358606 (Version 1)
Quarter: 2013Q2

REPORT INFORMATION
  Report Type: Spontaneous
  Country: FR (occurrence: FR)
  Receive Date: 20130620
  Receipt Date: 20130620
  Transmission Date: 20140414
  Serious: Yes (Other)
  Sender: FDA-Public Use
  Company Number: PHHY2013FR061521

PATIENT
  Age: 85 Year
  Sex: Male

DRUGS (7)
  1. FUROSEMIDE [Suspect]
     Indication: OEDEMA PERIPHERAL
     Dosage: 40 MG, DAILY
     Route: 048
     Dates: start: 200711, end: 20080408
  2. APROVEL [Suspect]
     Route: 048
  3. VASTEN [Concomitant]
     Route: 048
  4. KREDEX [Concomitant]
     Route: 048
  5. AMLOR [Concomitant]
     Route: 048
  6. KARDEGIC [Concomitant]
     Route: 048
  7. PARIET [Concomitant]
     Route: 048

REACTIONS (3)
  - Weight increased [Recovered/Resolved]
  - Oedema [Recovered/Resolved]
  - Therapeutic response decreased [Recovered/Resolved]
